FAERS Safety Report 20944953 (Version 1)
Quarter: 2022Q2

REPORT INFORMATION
  Report Type: Spontaneous
  Country: US (occurrence: None)
  Receive Date: 20220609
  Receipt Date: 20220609
  Transmission Date: 20220720
  Serious: Yes (Life-Threatening, Hospitalization)
  Sender: FDA-Public Use
  Company Number: None

PATIENT
  Age: 55 Year
  Sex: Male

DRUGS (1)
  1. CAPECITABINE [Suspect]
     Active Substance: CAPECITABINE
     Indication: Benign anorectal neoplasm
     Dosage: 1500MG BID ORAL?
     Route: 048
     Dates: start: 202203

REACTIONS (4)
  - Adverse drug reaction [None]
  - Palmar-plantar erythrodysaesthesia syndrome [None]
  - Renal disorder [None]
  - Dialysis [None]

NARRATIVE: CASE EVENT DATE: 20220513
